FAERS Safety Report 9055207 (Version 1)
Quarter: 2013Q1

REPORT INFORMATION
  Report Type: Spontaneous
  Country: US (occurrence: US)
  Receive Date: 20130206
  Receipt Date: 20130206
  Transmission Date: 20140127
  Serious: No
  Sender: FDA-Public Use
  Company Number: US-PFIZER INC-2013036861

PATIENT
  Age: 10 Year
  Sex: Female
  Weight: 27.21 kg

DRUGS (4)
  1. GENOTROPIN MQ [Suspect]
     Indication: GROWTH HORMONE DEFICIENCY
     Dosage: 1.4 MG, 6 TIMES A WEEK
     Route: 058
  2. GENOTROPIN MQ [Suspect]
     Dosage: 1.6 MG, 1X/DAY
     Route: 058
  3. PAPAYA ENZYME [Concomitant]
     Dosage: UNK
  4. PROBIOTIC [Concomitant]
     Dosage: UNK

REACTIONS (2)
  - Fatigue [Unknown]
  - Lethargy [Unknown]
